FAERS Safety Report 21666536 (Version 1)
Quarter: 2022Q4

REPORT INFORMATION
  Report Type: Spontaneous
  Country: CN (occurrence: CN)
  Receive Date: 20221201
  Receipt Date: 20221201
  Transmission Date: 20230112
  Serious: Yes (Hospitalization)
  Sender: FDA-Public Use
  Company Number: CN-SA-2022SA490046

PATIENT
  Age: 60 Year
  Sex: Female

DRUGS (2)
  1. TOUJEO [Suspect]
     Active Substance: INSULIN GLARGINE
     Indication: Diabetes mellitus
     Dosage: 15 IU, QD
     Route: 058
     Dates: start: 20220708, end: 2022
  2. LANTUS [Concomitant]
     Active Substance: INSULIN GLARGINE
     Dosage: 18IU QD

REACTIONS (5)
  - Skin disorder [Not Recovered/Not Resolved]
  - Blood glucose increased [Recovered/Resolved]
  - Cardiac discomfort [Not Recovered/Not Resolved]
  - Renal disorder [Not Recovered/Not Resolved]
  - Incorrect dose administered [Unknown]

NARRATIVE: CASE EVENT DATE: 20220701
